FAERS Safety Report 10856227 (Version 1)
Quarter: 2015Q1

REPORT INFORMATION
  Report Type: Spontaneous
  Country: US (occurrence: US)
  Receive Date: 20150223
  Receipt Date: 20150223
  Transmission Date: 20150721
  Serious: Yes (Life-Threatening, Hospitalization)
  Sender: FDA-Public Use
  Company Number: US-MYLANLABS-2015M1004727

PATIENT

DRUGS (1)
  1. METHOTREXATE [Suspect]
     Active Substance: METHOTREXATE

REACTIONS (7)
  - Toxicity to various agents [Recovering/Resolving]
  - Anaemia [Recovering/Resolving]
  - Stomatitis [Recovering/Resolving]
  - Haemoptysis [Recovering/Resolving]
  - Leukopenia [Recovering/Resolving]
  - Swelling face [Recovering/Resolving]
  - Respiratory failure [Recovering/Resolving]
